FAERS Safety Report 8764884 (Version 1)
Quarter: 2012Q4

REPORT INFORMATION
  Report Type: Report from Study
  Country: JP (occurrence: JP)
  Receive Date: 20120901
  Receipt Date: 20120901
  Transmission Date: 20130627
  Serious: Yes (Hospitalization)
  Sender: FDA-Public Use
  Company Number: JP-009507513-1208JPN008262

PATIENT

DRUGS (7)
  1. PEGINTRON [Suspect]
     Indication: HEPATITIS C
     Dosage: 1.5 Microgram per kilogram, qw
     Route: 058
     Dates: start: 20120620, end: 20120711
  2. PEGINTRON [Suspect]
     Dosage: 1.48 Microgram per kilogram, qw
     Route: 058
     Dates: start: 20120718
  3. REBETOL CAPSULES 200MG [Suspect]
     Indication: HEPATITIS C
     Dosage: 600 mg, qd
     Route: 048
     Dates: start: 20120620
  4. TELAVIC [Suspect]
     Indication: HEPATITIS C
     Dosage: 2250 mg, qd
     Route: 048
     Dates: start: 20120620
  5. L CARTIN [Concomitant]
     Indication: PROPHYLAXIS
     Dosage: 900 mg, qd
     Route: 048
     Dates: start: 20120620
  6. LOXONIN [Concomitant]
     Indication: PROPHYLAXIS
     Dosage: 60 mg, qd
     Route: 048
     Dates: start: 20120620
  7. ZYLORIC [Concomitant]
     Dosage: 100 mg, qd
     Dates: start: 20120705

REACTIONS (1)
  - Decreased appetite [Not Recovered/Not Resolved]
